FAERS Safety Report 6725475-4 (Version None)
Quarter: 2010Q2

REPORT INFORMATION
  Report Type: 
  Country: None (occurrence: None)
  Receive Date: 20100513
  Receipt Date: 20100513
  Transmission Date: 20101027
  Serious: Yes (Hospitalization)
  Sender: FDA-Public Use
  Company Number: None

PATIENT
  Age: 66 Year
  Sex: Male
  Weight: 63.5036 kg

DRUGS (2)
  1. MYFORTIC [Suspect]
     Dosage: 360 MG X 2 AM PM DAILY 720 MG X 2 AM PM DAILY
     Dates: start: 20100322
  2. MYFORTIC [Suspect]
     Dosage: 360 MG X 2 AM PM DAILY 720 MG X 2 AM PM DAILY
     Dates: start: 20100405

REACTIONS (8)
  - ASTHENIA [None]
  - CHILLS [None]
  - DECREASED APPETITE [None]
  - OEDEMA PERIPHERAL [None]
  - PAIN IN EXTREMITY [None]
  - PERIPHERAL COLDNESS [None]
  - SKIN DISORDER [None]
  - TREMOR [None]
